FAERS Safety Report 17988982 (Version 1)
Quarter: 2020Q3

REPORT INFORMATION
  Report Type: Spontaneous
  Country: US (occurrence: US)
  Receive Date: 20200707
  Receipt Date: 20200707
  Transmission Date: 20201103
  Serious: No
  Sender: FDA-Public Use
  Company Number: US-MYLANLABS-2020M1058644

PATIENT
  Age: 75 Year
  Sex: Female
  Weight: 75.3 kg

DRUGS (4)
  1. METFORMIN [Concomitant]
     Active Substance: METFORMIN HYDROCHLORIDE
     Indication: DIABETES MELLITUS
     Dosage: 1000 MILLIGRAM, BID 1 TABLET TWICE A DAY BY MOUTH
     Route: 048
  2. SPIRONOLACTONE. [Suspect]
     Active Substance: SPIRONOLACTONE
     Indication: BLOOD PRESSURE ABNORMAL
     Dosage: UNK
  3. GLIMEPIRIDE. [Concomitant]
     Active Substance: GLIMEPIRIDE
     Indication: DIABETES MELLITUS
     Dosage: 2 MILLIGRAM, BID 1 TABLET TWICE A DAY BY MOUTH
     Route: 048
  4. DILTIAZEM. [Concomitant]
     Active Substance: DILTIAZEM
     Indication: HYPERTENSION
     Dosage: 360 MILLIGRAM, QD
     Route: 048

REACTIONS (2)
  - Skin exfoliation [Unknown]
  - Lip swelling [Not Recovered/Not Resolved]

NARRATIVE: CASE EVENT DATE: 202006
